FAERS Safety Report 7534663-9 (Version None)
Quarter: 2011Q2

REPORT INFORMATION
  Report Type: 
  Country: None (occurrence: None)
  Receive Date: 20110609
  Receipt Date: 20110404
  Transmission Date: 20111010
  Serious: Yes (Other)
  Sender: FDA-Public Use
  Company Number: PHEH2006US03723

PATIENT
  Sex: Female

DRUGS (45)
  1. WARFARIN SODIUM [Concomitant]
  2. FASLODEX [Concomitant]
  3. AROMASIN [Concomitant]
  4. DARVOCET-N 50 [Concomitant]
     Dosage: 1 TO 2 PER ORAL EVERY 4 HRS AS NEEDED
  5. CYTOXAN [Concomitant]
     Dosage: 600 MG/M2, X 6 CYCLES
  6. LISINOPRIL [Concomitant]
  7. TOPROL-XL [Concomitant]
  8. ZEBETA [Concomitant]
  9. ESTRADIOL [Concomitant]
  10. HYDROCODONE BITARTRATE [Concomitant]
  11. KEFLEX [Concomitant]
     Dosage: 500 MG, QID
     Route: 048
  12. FEMARA [Concomitant]
     Dosage: 5 MG, QD
     Route: 048
  13. FEMARA [Concomitant]
     Dosage: 2.5 MG, DAILY
     Dates: start: 20020218
  14. XELODA [Concomitant]
  15. AUGMENTIN '125' [Concomitant]
  16. FLUOROURACIL [Concomitant]
  17. COUMADIN [Concomitant]
     Dosage: 2 MG, UNK
  18. COUMADIN [Concomitant]
     Dosage: 5 MG, QD
     Route: 048
     Dates: start: 20030705
  19. FENTANYL [Concomitant]
     Dosage: UNK
     Route: 042
  20. VISTARIL [Concomitant]
     Dosage: 50 MG/ML
  21. ZOMETA [Suspect]
     Indication: BREAST CANCER METASTATIC
     Dosage: 4 MG, QMO
     Route: 042
     Dates: start: 20020617, end: 20050831
  22. FUROSEMIDE [Concomitant]
  23. ASPIRIN [Concomitant]
  24. MULTIVITAMIN ^LAPPE^ [Concomitant]
     Dosage: 1 DF, QD
  25. TAMOXIFEN CITRATE [Concomitant]
  26. TETRACYCLINE [Concomitant]
  27. REGLAN [Concomitant]
     Dosage: 10 MG, UNK
     Route: 042
  28. COUMADIN [Concomitant]
     Dosage: 7.5 MG, QD
     Route: 048
     Dates: start: 20030706
  29. PENICILLIN VK [Concomitant]
  30. NORCO [Concomitant]
  31. ADRIAMYCIN PFS [Concomitant]
  32. RITUXAN [Concomitant]
  33. TIGAN [Concomitant]
     Dosage: 200 MG/2 ML
     Route: 030
  34. ANCEF [Concomitant]
     Dosage: 1G/10 ML
     Route: 042
  35. DEMEROL [Concomitant]
     Dosage: 330 MG/30 ML
  36. COMPAZINE [Concomitant]
  37. VICODIN [Concomitant]
     Dosage: TAKE ONE OR TWO EVERY 4 -6 HRS IF NEEDED FOR PAIN
  38. POTASSIUM CHLORIDE [Concomitant]
  39. PERIDEX [Concomitant]
  40. DECADRON [Concomitant]
  41. VERSED [Concomitant]
     Dosage: 1 MG, UNK
     Route: 042
  42. CYTOXAN [Concomitant]
     Dosage: 600 MG/M2, X 6 CYCLES
  43. LIPITOR [Concomitant]
  44. K-DUR [Concomitant]
  45. TAXOTERE [Concomitant]

REACTIONS (62)
  - BONE FRAGMENTATION [None]
  - EATING DISORDER [None]
  - METASTASES TO BONE [None]
  - OSTEOLYSIS [None]
  - GOITRE [None]
  - OSTEOMYELITIS CHRONIC [None]
  - DENTAL CARIES [None]
  - SOFT TISSUE INFECTION [None]
  - PHYSICAL DISABILITY [None]
  - MENORRHAGIA [None]
  - DIARRHOEA [None]
  - ANAEMIA [None]
  - HAEMOGLOBIN DECREASED [None]
  - OSTEOPENIA [None]
  - PLEURAL EFFUSION [None]
  - COLON CANCER [None]
  - OSTEONECROSIS OF JAW [None]
  - INFECTION [None]
  - STAPHYLOCOCCAL INFECTION [None]
  - PAIN IN JAW [None]
  - SINUSITIS [None]
  - ASTHENIA [None]
  - SUPRAVENTRICULAR EXTRASYSTOLES [None]
  - BONE DISORDER [None]
  - ABSCESS JAW [None]
  - MYOCARDIAL INFARCTION [None]
  - PERIODONTAL DISEASE [None]
  - LUNG NEOPLASM [None]
  - FISTULA [None]
  - LOCAL SWELLING [None]
  - DEFORMITY [None]
  - CARDIAC FAILURE CONGESTIVE [None]
  - EPISTAXIS [None]
  - INFLUENZA [None]
  - HYPERLIPIDAEMIA [None]
  - SINUS ARRHYTHMIA [None]
  - CACHEXIA [None]
  - SPINAL OSTEOARTHRITIS [None]
  - HIATUS HERNIA [None]
  - SKIN LESION [None]
  - DYSGEUSIA [None]
  - ERYTHEMA [None]
  - PRIMARY SEQUESTRUM [None]
  - ACTINOMYCOSIS [None]
  - INJURY [None]
  - PAIN IN EXTREMITY [None]
  - OSTEOARTHRITIS [None]
  - HILAR LYMPHADENOPATHY [None]
  - CEREBELLAR ATROPHY [None]
  - BONE LESION [None]
  - POST PROCEDURAL DISCHARGE [None]
  - BLOOD PRESSURE DECREASED [None]
  - INTERNATIONAL NORMALISED RATIO INCREASED [None]
  - HYPERTENSION [None]
  - HAEMATOCRIT DECREASED [None]
  - OSTEOMYELITIS [None]
  - PAIN [None]
  - PURULENT DISCHARGE [None]
  - PROTHROMBIN TIME PROLONGED [None]
  - BLOOD UREA DECREASED [None]
  - EMPHYSEMA [None]
  - THYROID NEOPLASM [None]
